FAERS Safety Report 21937835 (Version 1)
Quarter: 2023Q1

REPORT INFORMATION
  Report Type: Spontaneous
  Country: IN (occurrence: None)
  Receive Date: 20230201
  Receipt Date: 20230201
  Transmission Date: 20230418
  Serious: Yes (Hospitalization)
  Sender: FDA-Public Use
  Company Number: None

PATIENT
  Age: 32 Year
  Sex: Female
  Weight: 60 kg

DRUGS (7)
  1. HUMAN RABIES VIRUS IMMUNE GLOBULIN [Suspect]
     Active Substance: HUMAN RABIES VIRUS IMMUNE GLOBULIN
  2. Amixide H [Concomitant]
  3. Topamac 50 [Concomitant]
  4. D-Veniz 50 [Concomitant]
  5. Seroflo 250 [Concomitant]
  6. Orofer XT [Concomitant]
  7. Montec LC [Concomitant]

REACTIONS (7)
  - Inflammation [None]
  - Blepharitis [None]
  - Erythema of eyelid [None]
  - Epistaxis [None]
  - Nasal dryness [None]
  - Red blood cell anisocytes present [None]
  - Microcytosis [None]

NARRATIVE: CASE EVENT DATE: 20230131
